FAERS Safety Report 10006198 (Version 3)
Quarter: 2014Q2

REPORT INFORMATION
  Report Type: Spontaneous
  Country: PR (occurrence: PR)
  Receive Date: 20140313
  Receipt Date: 20140425
  Transmission Date: 20141212
  Serious: Yes (Other)
  Sender: FDA-Public Use
  Company Number: US-ASTELLAS-2014US002356

PATIENT
  Age: 62 Year
  Sex: Female

DRUGS (5)
  1. TARCEVA [Suspect]
     Indication: LUNG NEOPLASM MALIGNANT
     Route: 048
     Dates: start: 20130425, end: 20140210
  2. TARCEVA [Suspect]
     Route: 048
     Dates: start: 20130731
  3. TARCEVA [Suspect]
     Route: 048
     Dates: start: 20081020
  4. LOSARTAN [Concomitant]
     Indication: HYPERTENSION
     Route: 048
  5. VERAPAMIL [Concomitant]
     Indication: HYPERTENSION
     Route: 048

REACTIONS (4)
  - Eye swelling [Recovering/Resolving]
  - Rash [Recovered/Resolved]
  - Ocular hyperaemia [Recovering/Resolving]
  - Incorrect dose administered [Unknown]
